FAERS Safety Report 21154149 (Version 3)
Quarter: 2022Q3

REPORT INFORMATION
  Report Type: Report from Study
  Country: CA (occurrence: CA)
  Receive Date: 20220801
  Receipt Date: 20220830
  Transmission Date: 20221027
  Serious: Yes (Hospitalization)
  Sender: FDA-Public Use
  Company Number: CA-JNJFOC-20220663619

PATIENT
  Age: 49 Year
  Sex: Male

DRUGS (2)
  1. AD26.COV2.S [Suspect]
     Active Substance: AD26.COV2.S
     Indication: COVID-19 prophylaxis
     Dosage: DOSE 1
     Route: 065
  2. REMICADE [Suspect]
     Active Substance: INFLIXIMAB
     Indication: Crohn^s disease
     Route: 042

REACTIONS (3)
  - Crohn^s disease [Recovered/Resolved]
  - COVID-19 [Recovered/Resolved]
  - Stress at work [Unknown]

NARRATIVE: CASE EVENT DATE: 20220615
